FAERS Safety Report 22344558 (Version 1)
Quarter: 2023Q2

REPORT INFORMATION
  Report Type: Spontaneous
  Country: CO (occurrence: None)
  Receive Date: 20230519
  Receipt Date: 20230519
  Transmission Date: 20230722
  Serious: Yes (Hospitalization)
  Sender: FDA-Public Use
  Company Number: 2023A114538

PATIENT
  Age: 15880 Day
  Sex: Female

DRUGS (1)
  1. LYNPARZA [Suspect]
     Active Substance: OLAPARIB
     Indication: Ovarian cancer
     Route: 048

REACTIONS (2)
  - Genital herpes [Recovering/Resolving]
  - Herpes zoster infection neurological [Recovering/Resolving]

NARRATIVE: CASE EVENT DATE: 20230414
